FAERS Safety Report 11840068 (Version 1)
Quarter: 2015Q4

REPORT INFORMATION
  Report Type: Spontaneous
  Country: JP (occurrence: JP)
  Receive Date: 20151216
  Receipt Date: 20151216
  Transmission Date: 20160305
  Serious: Yes (Other)
  Sender: FDA-Public Use
  Company Number: JP-009507513-2005-10-1268

PATIENT
  Sex: Female

DRUGS (8)
  1. REBETOL [Suspect]
     Active Substance: RIBAVIRIN
     Dosage: DOSE: 600 MG, DURATION: UNKNOWN
     Route: 048
     Dates: start: 20050526, end: 2005
  2. REBETOL [Suspect]
     Active Substance: RIBAVIRIN
     Dosage: DOSE: 200 MG, DURATION: UNKNOWN
     Route: 048
     Dates: start: 2005, end: 20050922
  3. REBETOL [Suspect]
     Active Substance: RIBAVIRIN
     Dosage: DOSE: 400 MG, DURATION: UNKNOWN
     Route: 048
     Dates: end: 20050322
  4. INTRON A [Suspect]
     Active Substance: INTERFERON ALFA-2B
     Indication: CHRONIC HEPATITIS C
     Dosage: DOSE: 6 MIU, DURATION: 7 MONTH(S)
     Route: 030
     Dates: start: 20040908, end: 20050322
  5. REBETOL [Suspect]
     Active Substance: RIBAVIRIN
     Dosage: DOSE: 600 MG, DURATION: UNKNOWN
     Route: 048
     Dates: start: 20040908
  6. REBETOL [Suspect]
     Active Substance: RIBAVIRIN
     Indication: CHRONIC HEPATITIS C
     Dosage: DOSE: 200-600 MG*, DURATION: 13 MONTH(S)
     Route: 048
     Dates: start: 20040908, end: 20050922
  7. PEGINTRON [Suspect]
     Active Substance: PEGINTERFERON ALFA-2B
     Indication: CHRONIC HEPATITIS C
     Dosage: DOSE: 100 MCG QW, DURATION: 4 MONTH(S)
     Route: 058
     Dates: start: 20050526, end: 20050922
  8. REBETOL [Suspect]
     Active Substance: RIBAVIRIN
     Dosage: DOSE: 400 MG, DURATION: UNKNOWN
     Route: 048
     Dates: start: 2005, end: 2005

REACTIONS (2)
  - Abortion induced [Unknown]
  - Exposure during pregnancy [Unknown]

NARRATIVE: CASE EVENT DATE: 2005
